FAERS Safety Report 14579234 (Version 1)
Quarter: 2018Q1

REPORT INFORMATION
  Report Type: Spontaneous
  Country: FR (occurrence: FR)
  Receive Date: 20180227
  Receipt Date: 20180227
  Transmission Date: 20180509
  Serious: Yes (Hospitalization)
  Sender: FDA-Public Use
  Company Number: FR-OTSUKA-DJ20060392

PATIENT

DRUGS (4)
  1. LYSANXIA [Suspect]
     Active Substance: PRAZEPAM
     Route: 048
     Dates: start: 20051116, end: 20051230
  2. ABILIFY [Suspect]
     Active Substance: ARIPIPRAZOLE
     Route: 048
     Dates: start: 20051025, end: 20051222
  3. LYSANXIA [Suspect]
     Active Substance: PRAZEPAM
     Route: 048
     Dates: start: 200511, end: 20051115
  4. LYSANXIA [Suspect]
     Active Substance: PRAZEPAM
     Route: 048
     Dates: start: 20051025, end: 200511

REACTIONS (1)
  - Conversion disorder [Recovered/Resolved]

NARRATIVE: CASE EVENT DATE: 20051108
